FAERS Safety Report 9184640 (Version 1)
Quarter: 2013Q1

REPORT INFORMATION
  Report Type: Spontaneous
  Country: DE (occurrence: DE)
  Receive Date: 20130324
  Receipt Date: 20130324
  Transmission Date: 20140127
  Serious: Yes (Hospitalization)
  Sender: FDA-Public Use
  Company Number: DE-ELI_LILLY_AND_COMPANY-DE201302009695

PATIENT
  Sex: Female

DRUGS (7)
  1. FORSTEO [Suspect]
     Indication: OSTEOPOROSIS
     Dosage: UNK, QD
     Route: 058
     Dates: start: 20110509
  2. ROPINIROLE [Concomitant]
  3. FOLIC ACID [Concomitant]
  4. MTX [Concomitant]
  5. CALCIUM + VITAMIN D [Concomitant]
  6. MEDIVITAN [Concomitant]
  7. TORASEMID [Concomitant]

REACTIONS (6)
  - Cardiac failure [Unknown]
  - Pulmonary arterial hypertension [Unknown]
  - Arthralgia [Unknown]
  - Pain in extremity [Unknown]
  - Rash [Unknown]
  - Mobility decreased [Unknown]
